FAERS Safety Report 12906903 (Version 1)
Quarter: 2016Q4

REPORT INFORMATION
  Report Type: Spontaneous
  Country: GB (occurrence: GB)
  Receive Date: 20161103
  Receipt Date: 20161103
  Transmission Date: 20170207
  Serious: Yes (Hospitalization, Disabling)
  Sender: FDA-Public Use
  Company Number: GB-PFIZER INC-2016505764

PATIENT
  Age: 74 Year
  Sex: Female

DRUGS (10)
  1. LORAZEPAM. [Suspect]
     Active Substance: LORAZEPAM
     Indication: AGITATION
     Dosage: 1 MG, 2X/DAY
     Dates: start: 20160625, end: 20160703
  2. ZOPICLONE [Interacting]
     Active Substance: ZOPICLONE
     Dosage: 7.5 MG, 1X/DAY (STARTED YEARS AGO, AT NIGHT)
  3. RIVASTIGMINE. [Concomitant]
     Active Substance: RIVASTIGMINE
     Dosage: 9.5 MG, 1X/DAY
  4. LATANOPROST. [Concomitant]
     Active Substance: LATANOPROST
     Dosage: UNK
  5. BRINZOLAMIDE [Concomitant]
     Active Substance: BRINZOLAMIDE
     Dosage: UNK
  6. BRIMONIDINE [Concomitant]
     Active Substance: BRIMONIDINE TARTRATE
     Dosage: UNK
  7. LEVOTHYROXINE. [Concomitant]
     Active Substance: LEVOTHYROXINE
     Dosage: UNK
  8. PARACETAMOL [Concomitant]
     Active Substance: ACETAMINOPHEN
     Dosage: UNK
  9. MEMANTINE. [Concomitant]
     Active Substance: MEMANTINE
     Dosage: 20 MG, 1X/DAY
  10. CARMELLOSE [Concomitant]
     Dosage: UNK

REACTIONS (3)
  - Labelled drug-drug interaction medication error [Unknown]
  - Fall [Unknown]
  - Femoral neck fracture [Unknown]

NARRATIVE: CASE EVENT DATE: 20160701
